FAERS Safety Report 12613144 (Version 2)
Quarter: 2016Q4

REPORT INFORMATION
  Report Type: Report from Study
  Country: US (occurrence: US)
  Receive Date: 20160802
  Receipt Date: 20161117
  Transmission Date: 20170207
  Serious: Yes (Death, Hospitalization, Other)
  Sender: FDA-Public Use
  Company Number: US-CELGENEUS-USA-2016076535

PATIENT
  Age: 69 Year
  Sex: Female
  Weight: 69.37 kg

DRUGS (4)
  1. REVLIMID [Suspect]
     Active Substance: LENALIDOMIDE
     Route: 048
     Dates: start: 20140407, end: 20140422
  2. REVLIMID [Suspect]
     Active Substance: LENALIDOMIDE
     Route: 048
     Dates: start: 20140422, end: 20141103
  3. REVLIMID [Suspect]
     Active Substance: LENALIDOMIDE
     Route: 048
     Dates: end: 20141124
  4. REVLIMID [Suspect]
     Active Substance: LENALIDOMIDE
     Indication: PLASMA CELL MYELOMA
     Route: 048
     Dates: start: 20131003, end: 20140319

REACTIONS (3)
  - Non-small cell lung cancer metastatic [Recovered/Resolved]
  - Plasma cell myeloma [Fatal]
  - Pancytopenia [Unknown]

NARRATIVE: CASE EVENT DATE: 20141125
